FAERS Safety Report 5110249-0 (Version None)
Quarter: 2006Q3

REPORT INFORMATION
  Report Type: 
  Country: None (occurrence: None)
  Receive Date: 20060921
  Receipt Date: 20060920
  Transmission Date: 20061208
  Serious: Yes (Life-Threatening, Other)
  Sender: FDA-Public Use
  Company Number: US-GLAXOSMITHKLINE-A0620879A

PATIENT
  Age: 60 Year
  Sex: Female

DRUGS (2)
  1. CEFTIN [Suspect]
     Indication: SINUSITIS
     Dosage: 250MG TWICE PER DAY
     Route: 048
     Dates: start: 20060902, end: 20060902
  2. DIURETIC [Concomitant]

REACTIONS (3)
  - ANAPHYLACTIC REACTION [None]
  - LOSS OF CONSCIOUSNESS [None]
  - PRURITUS [None]
